FAERS Safety Report 6772833-8 (Version None)
Quarter: 2010Q2

REPORT INFORMATION
  Report Type: 
  Country: None (occurrence: None)
  Receive Date: 20100616
  Receipt Date: 20100609
  Transmission Date: 20101027
  Serious: Yes (Hospitalization)
  Sender: FDA-Public Use
  Company Number: JP-BRISTOL-MYERS SQUIBB COMPANY-15147754

PATIENT
  Age: 83 Year
  Sex: Male
  Weight: 54 kg

DRUGS (6)
  1. ERBITUX [Suspect]
     Indication: COLON CANCER
     Dosage: 250MG/M2-IV-1IN1WEEK 24DEC08-15APR09,13MAY-22JUL09+19AUG-14OCT091IN2WEEK RECENTINF ON:15APR09
     Route: 042
     Dates: start: 20081217, end: 20081217
  2. DIPHENHYDRAMINE [Concomitant]
     Indication: PREMEDICATION
     Dosage: TABLET
     Route: 048
     Dates: start: 20081217, end: 20091014
  3. DEXAMETHASONE SODIUM PHOSPHATE [Concomitant]
     Indication: PREMEDICATION
     Route: 042
     Dates: start: 20081217, end: 20091014
  4. GRANISETRON HCL [Concomitant]
     Indication: ANTIEMETIC SUPPORTIVE CARE
     Route: 065
     Dates: start: 20081217
  5. FUROSEMIDE [Concomitant]
     Indication: ASCITES
     Route: 048
     Dates: start: 20080903
  6. SPIRONOLACTONE [Concomitant]
     Indication: ASCITES
     Dosage: ALSO 75MG 1 IN 1DAY.22OCT08-04NOV08+05NOV08-STOPPED
     Route: 048
     Dates: start: 20081022, end: 20081104

REACTIONS (1)
  - DEEP VEIN THROMBOSIS [None]
